FAERS Safety Report 9769743 (Version 2)
Quarter: 2013Q4

REPORT INFORMATION
  Report Type: Spontaneous
  Country: US (occurrence: US)
  Receive Date: 20131218
  Receipt Date: 20131218
  Transmission Date: 20140711
  Serious: Yes (Other)
  Sender: FDA-Public Use
  Company Number: US-INCYTE CORPORATION-2013IN001447

PATIENT
  Sex: Female
  Weight: 67.57 kg

DRUGS (11)
  1. JAKAFI [Suspect]
     Indication: MYELOFIBROSIS
     Dosage: 10 MG, Q12H
     Route: 048
  2. BUPROPION [Concomitant]
     Dosage: 150 MG, QD
     Route: 048
     Dates: start: 20100702
  3. BUPROPION HCL ER [Concomitant]
     Dosage: 300 MG, QD
     Route: 048
     Dates: start: 20100719
  4. FENTANYL [Concomitant]
     Dosage: 12 MCG/HR Q 3 DAYS
     Route: 062
     Dates: start: 20130924
  5. HYDROCODONE BITARTRATE AND ACETAMINOPHEN [Concomitant]
     Dosage: 5-325 MG, 1-2 TABLETS Q 4-6 HRS PRN
     Dates: start: 20130805
  6. LIPITOR [Concomitant]
     Dosage: 20 MG, UNK
     Dates: start: 20100429
  7. PREMARIN [Concomitant]
     Dosage: 1 TABLET DAILY
     Dates: start: 20101010
  8. PREMARIN [Concomitant]
     Dosage: 10 MG, BID
     Route: 048
  9. SEROQUEL [Concomitant]
     Dosage: 50 MG, UNK
     Dates: start: 20110406
  10. SYNTHROID [Concomitant]
     Dosage: 137 MCG, UNK
     Dates: start: 20110309
  11. LITHIUM [Concomitant]
     Dosage: 300 MG, UNK
     Dates: start: 20100429

REACTIONS (2)
  - Splenic infarction [None]
  - Platelet count abnormal [Unknown]
